FAERS Safety Report 10073666 (Version 1)
Quarter: 2014Q2

REPORT INFORMATION
  Report Type: Report from Study
  Country: US (occurrence: US)
  Receive Date: 20140411
  Receipt Date: 20140411
  Transmission Date: 20141212
  Serious: Yes (Other)
  Sender: FDA-Public Use
  Company Number: US-ALEXION-A200800578

PATIENT
  Sex: Male

DRUGS (1)
  1. SOLIRIS [Suspect]
     Indication: PAROXYSMAL NOCTURNAL HAEMOGLOBINURIA
     Route: 042

REACTIONS (6)
  - Myelodysplastic syndrome [Unknown]
  - Fatigue [Unknown]
  - Headache [Unknown]
  - Dyspepsia [Unknown]
  - Arthralgia [Unknown]
  - Back pain [Unknown]
